FAERS Safety Report 12115098 (Version 3)
Quarter: 2016Q1

REPORT INFORMATION
  Report Type: Report from Study
  Country: CZ (occurrence: CZ)
  Receive Date: 20160225
  Receipt Date: 20160311
  Transmission Date: 20160526
  Serious: Yes (Death, Hospitalization, Other)
  Sender: FDA-Public Use
  Company Number: PHHY2016CZ024240

PATIENT
  Age: 70 Year
  Sex: Male
  Weight: 75 kg

DRUGS (6)
  1. TRAMETINIB [Suspect]
     Active Substance: TRAMETINIB
     Dosage: 1 MG, QD
     Route: 048
     Dates: start: 201512, end: 20160129
  2. DABRAFENIB [Suspect]
     Active Substance: DABRAFENIB
     Dosage: 75 MG, QD
     Route: 048
     Dates: start: 201512, end: 20160129
  3. HYDROCHLORTHIAZIDUM [Concomitant]
     Indication: HYPERTENSION
     Dosage: 145 MG, QD
     Route: 065
  4. DABRAFENIB [Suspect]
     Active Substance: DABRAFENIB
     Indication: METASTASIS
     Dosage: 150 MG, BID
     Route: 048
     Dates: start: 20151023, end: 201512
  5. BETALOC ZOK ^EGIS^ [Concomitant]
     Indication: HYPERTENSION
     Dosage: 25 MG, QD
     Route: 065
  6. TRAMETINIB [Suspect]
     Active Substance: TRAMETINIB
     Indication: METASTASIS
     Dosage: 2 MG, QD
     Route: 048
     Dates: start: 20151106, end: 201512

REACTIONS (9)
  - Cardiac arrest [Fatal]
  - Coma [Not Recovered/Not Resolved]
  - Disorientation [Unknown]
  - Aggression [Fatal]
  - General physical health deterioration [Fatal]
  - Toxicity to various agents [Fatal]
  - Encephalopathy [Fatal]
  - Gait disturbance [Fatal]
  - Dysarthria [Fatal]

NARRATIVE: CASE EVENT DATE: 201602
